FAERS Safety Report 20674485 (Version 1)
Quarter: 2022Q2

REPORT INFORMATION
  Report Type: Spontaneous
  Country: AT (occurrence: AT)
  Receive Date: 20220405
  Receipt Date: 20220405
  Transmission Date: 20220721
  Serious: Yes (Other)
  Sender: FDA-Public Use
  Company Number: AT-NOVARTISPH-NVSC2022AT072120

PATIENT
  Age: 56 Year
  Sex: Female

DRUGS (3)
  1. PEMETREXED [Suspect]
     Active Substance: PEMETREXED
     Indication: Non-small cell lung cancer stage IV
     Dosage: 500 MG/M2, Q3W (FIRST-LINE TREATMENT)
     Route: 042
  2. CARBOPLATIN [Suspect]
     Active Substance: CARBOPLATIN
     Indication: Non-small cell lung cancer stage IV
     Dosage: UNK UNK, CYCLIC (FIRST-LINE TREATMENT, 4 CYCLES OF CARBOPLATIN [AUC 5 MG/ML/)
     Route: 042
  3. PEMBROLIZUMAB [Suspect]
     Active Substance: PEMBROLIZUMAB
     Indication: Non-small cell lung cancer stage IV
     Dosage: 200 MG, Q3W (FIRST-LINE TREATMENT)
     Route: 042

REACTIONS (3)
  - Nephritis [Unknown]
  - Therapy partial responder [Unknown]
  - Product use in unapproved indication [Unknown]
